FAERS Safety Report 24705411 (Version 1)
Quarter: 2024Q4

REPORT INFORMATION
  Report Type: Spontaneous
  Country: DE (occurrence: DE)
  Receive Date: 20241206
  Receipt Date: 20241206
  Transmission Date: 20250114
  Serious: Yes (Other)
  Sender: RANBAXY
  Company Number: DE-EMA-DD-20180514-devashreeevhpdd-140859

PATIENT
  Age: 3 Year
  Sex: Female

DRUGS (10)
  1. CYCLOSPORINE [Suspect]
     Active Substance: CYCLOSPORINE
     Indication: Nephrotic syndrome
     Dosage: UNK
     Route: 065
  2. CYCLOSPORINE [Suspect]
     Active Substance: CYCLOSPORINE
     Indication: Nephrotic syndrome
     Dosage: 5 MILLIGRAM/KILOGRAM, DAILY
     Route: 048
  3. CELLCEPT [Suspect]
     Active Substance: MYCOPHENOLATE MOFETIL
     Indication: Nephrotic syndrome
     Dosage: 600 MILLIGRAM/SQ. METER, QOD
     Route: 065
  4. UNSPECIFIED INGREDIENT [Concomitant]
     Active Substance: UNSPECIFIED INGREDIENT
     Indication: Product used for unknown indication
     Dosage: UNK UKN, UNK
     Route: 065
  5. UNSPECIFIED INGREDIENT [Concomitant]
     Active Substance: UNSPECIFIED INGREDIENT
     Indication: Product used for unknown indication
     Dosage: UNK
     Route: 065
  6. METHYLPREDNI [Concomitant]
     Indication: Nephrotic syndrome
     Dosage: 750 MILLIGRAM
     Route: 040
  7. METHYLPREDNISOLONE [Concomitant]
     Active Substance: METHYLPREDNISOLONE
     Indication: Nephrotic syndrome
     Dosage: 500-750 MG
     Route: 040
  8. PREDNISOLONE [Concomitant]
     Active Substance: PREDNISOLONE
     Indication: Nephrotic syndrome
     Dosage: 20 MILLIGRAM/SQ. METER, QOD
     Route: 048
  9. PREDNISOLONE [Concomitant]
     Active Substance: PREDNISOLONE
     Indication: Nephrotic syndrome
     Dosage: 30 MILLIGRAM/SQ. METER, DAILY
     Route: 048
  10. RITUXIMAB [Concomitant]
     Active Substance: RITUXIMAB
     Indication: Product used for unknown indication
     Dosage: UNK
     Route: 040

REACTIONS (4)
  - Abdominal pain [Recovered/Resolved]
  - Nephrotic syndrome [Unknown]
  - Nausea [Recovered/Resolved]
  - Anaemia [Unknown]
